FAERS Safety Report 4780332-8 (Version None)
Quarter: 2005Q3

REPORT INFORMATION
  Report Type: 
  Country: None (occurrence: None)
  Receive Date: 20050927
  Receipt Date: 20050914
  Transmission Date: 20060218
  Serious: Yes (Other)
  Sender: FDA-Public Use
  Company Number: 2005SE05207

PATIENT
  Sex: Male

DRUGS (5)
  1. SEROQUEL [Suspect]
  2. LITAREX [Suspect]
  3. LAMICTAL [Suspect]
  4. DICLOCIL [Concomitant]
     Indication: ABSCESS
  5. ROXITHROMYCIN [Concomitant]

REACTIONS (4)
  - BURNING SENSATION [None]
  - FLUSHING [None]
  - PHARYNGEAL OEDEMA [None]
  - PRURITUS [None]
